FAERS Safety Report 21185691 (Version 1)
Quarter: 2022Q3

REPORT INFORMATION
  Report Type: Spontaneous
  Country: US (occurrence: US)
  Receive Date: 20220808
  Receipt Date: 20220808
  Transmission Date: 20221027
  Serious: No
  Sender: FDA-Public Use
  Company Number: US-SA-SAC20220803001734

PATIENT
  Age: 29 Year
  Sex: Male
  Weight: 108 kg

DRUGS (1)
  1. DUPIXENT [Suspect]
     Active Substance: DUPILUMAB
     Indication: Dermatitis atopic
     Dosage: 300 MG EVERY 2 WEEKS
     Route: 058

REACTIONS (2)
  - Dry skin [Unknown]
  - Pruritus [Unknown]
